FAERS Safety Report 17678895 (Version 2)
Quarter: 2021Q4

REPORT INFORMATION
  Report Type: Spontaneous
  Country: US (occurrence: US)
  Receive Date: 20200417
  Receipt Date: 20211231
  Transmission Date: 20220303
  Serious: Yes (Life-Threatening, Hospitalization, Other)
  Sender: FDA-Public Use
  Company Number: US-MLMSERVICE-20200402-2239071-1

PATIENT
  Age: 54 Year
  Sex: Male

DRUGS (1)
  1. ROSUVASTATIN [Suspect]
     Active Substance: ROSUVASTATIN
     Indication: Product used for unknown indication
     Dosage: UNK
     Route: 065

REACTIONS (8)
  - Lymphadenopathy [Unknown]
  - Disseminated intravascular coagulation [Unknown]
  - Drug reaction with eosinophilia and systemic symptoms [Recovering/Resolving]
  - Drug eruption [Recovering/Resolving]
  - Hyperbilirubinaemia [Recovered/Resolved]
  - Transaminases increased [Recovered/Resolved]
  - Renal failure [Recovered/Resolved]
  - Leukocytosis [Recovered/Resolved]
